FAERS Safety Report 19900380 (Version 1)
Quarter: 2021Q3

REPORT INFORMATION
  Report Type: Spontaneous
  Country: US (occurrence: US)
  Receive Date: 20210929
  Receipt Date: 20210929
  Transmission Date: 20211014
  Serious: No
  Sender: FDA-Public Use
  Company Number: None

PATIENT

DRUGS (2)
  1. ZOLOFT [Suspect]
     Active Substance: SERTRALINE HYDROCHLORIDE
  2. TOPIRAMATE. [Suspect]
     Active Substance: TOPIRAMATE

REACTIONS (4)
  - Product label issue [None]
  - Wrong product administered [None]
  - Product dispensing error [None]
  - Product prescribing error [None]
